FAERS Safety Report 7068819-9 (Version None)
Quarter: 2010Q4

REPORT INFORMATION
  Report Type: 
  Country: None (occurrence: None)
  Receive Date: 20101028
  Receipt Date: 20101022
  Transmission Date: 20110411
  Serious: Yes (Death, Hospitalization, Other)
  Sender: FDA-Public Use
  Company Number: GB-MERCK-1010GBR00002

PATIENT
  Age: 75 Year
  Sex: Female
  Weight: 63 kg

DRUGS (16)
  1. PRINIVIL [Suspect]
     Indication: HYPERTENSION
     Route: 048
     Dates: start: 20020301
  2. LEFLUNOMIDE [Suspect]
     Indication: RHEUMATOID ARTHRITIS
     Route: 048
     Dates: start: 20010101
  3. ASPIRIN [Suspect]
     Indication: PAIN
     Route: 065
     Dates: start: 20020301
  4. ATORVASTATIN CALCIUM [Suspect]
     Indication: HYPERCHOLESTEROLAEMIA
     Route: 065
     Dates: start: 19990101
  5. BUDESONIDE [Suspect]
     Indication: ASTHMA
     Route: 055
     Dates: start: 20020301
  6. ACETAMINOPHEN AND CODEINE PHOSPHATE [Suspect]
     Indication: RHEUMATOID ARTHRITIS
     Route: 065
     Dates: start: 20020301
  7. DILTIAZEM HYDROCHLORIDE [Suspect]
     Indication: HYPERTENSION
     Route: 065
     Dates: start: 20020301, end: 20020301
  8. FENTANYL [Suspect]
     Indication: ANAESTHESIA
     Route: 042
     Dates: start: 20020301, end: 20020301
  9. NITROGLYCERIN [Suspect]
     Indication: PAIN
     Route: 048
     Dates: start: 20020301
  10. NITROGLYCERIN [Suspect]
     Indication: ANGINA PECTORIS
     Route: 048
     Dates: start: 20020301
  11. LANSOPRAZOLE [Suspect]
     Indication: DUODENAL ULCER
     Route: 065
     Dates: start: 20010301
  12. MIDAZOLAM [Suspect]
     Indication: ANAESTHESIA
     Route: 042
     Dates: start: 20020301, end: 20020301
  13. PANCURONIUM BROMIDE [Suspect]
     Indication: MUSCLE RELAXANT THERAPY
     Route: 065
     Dates: start: 20020301, end: 20020301
  14. PROPOFOL [Suspect]
     Indication: ANAESTHESIA
     Route: 042
     Dates: start: 20020301, end: 20020301
  15. QUININE SULFATE [Suspect]
     Indication: MUSCLE SPASMS
     Route: 065
  16. FLUTICASONE PROPIONATE [Concomitant]
     Route: 065

REACTIONS (12)
  - ABDOMINAL PAIN UPPER [None]
  - ABDOMINAL RIGIDITY [None]
  - ACUTE HEPATIC FAILURE [None]
  - CORONARY ARTERY DISEASE [None]
  - DIVERTICULITIS [None]
  - DUODENAL ULCER [None]
  - GASTROINTESTINAL HAEMORRHAGE [None]
  - HAEMATEMESIS [None]
  - INTESTINAL ISCHAEMIA [None]
  - LABILE BLOOD PRESSURE [None]
  - MULTI-ORGAN FAILURE [None]
  - RENAL FAILURE [None]
